FAERS Safety Report 5570960-4 (Version None)
Quarter: 2007Q4

REPORT INFORMATION
  Report Type: 
  Country: None (occurrence: None)
  Receive Date: 20071221
  Receipt Date: 20071207
  Transmission Date: 20080405
  Serious: Yes (Hospitalization)
  Sender: FDA-Public Use
  Company Number: GB-TEVA-165311ISR

PATIENT
  Age: 78 Year
  Sex: Male

DRUGS (1)
  1. QUININE [Suspect]
     Indication: MUSCLE SPASMS
     Route: 048

REACTIONS (1)
  - ECZEMA [None]
